FAERS Safety Report 9614224 (Version 1)
Quarter: 2013Q4

REPORT INFORMATION
  Report Type: Spontaneous
  Country: US (occurrence: US)
  Receive Date: 20131011
  Receipt Date: 20131011
  Transmission Date: 20140711
  Serious: No
  Sender: FDA-Public Use
  Company Number: US-009507513-1310USA004519

PATIENT
  Sex: Female
  Weight: 51.7 kg

DRUGS (8)
  1. VICTRELIS [Suspect]
     Dosage: 200 MG, 4 CAPSULES (800 MG) THREE TIMES A DAY(EVERY 7-9 HOURS), START ON WEEK 5
     Route: 048
  2. RIBAVIRIN (WARRICK) [Suspect]
     Route: 048
  3. PEGASYS [Concomitant]
     Dosage: PROCLICK
  4. WELLBUTRIN [Concomitant]
     Route: 048
  5. XANAX [Concomitant]
     Route: 048
  6. ZINC (UNSPECIFIED) [Concomitant]
     Route: 048
  7. MILK THISTLE [Concomitant]
     Route: 048
  8. OXYCODONE [Concomitant]
     Route: 048

REACTIONS (5)
  - White blood cell count decreased [Unknown]
  - Anaemia [Unknown]
  - Decreased appetite [Unknown]
  - Dysgeusia [Unknown]
  - Dizziness [Unknown]
